FAERS Safety Report 4431918-1 (Version None)
Quarter: 2004Q3

REPORT INFORMATION
  Report Type: 
  Country: None (occurrence: None)
  Receive Date: 20040819
  Receipt Date: 20030731
  Transmission Date: 20050211
  Serious: Yes (Other)
  Sender: FDA-Public Use
  Company Number: BR-JNJFOC-20040603995

PATIENT
  Age: 27 Year
  Sex: Female

DRUGS (5)
  1. TYLENOL [Suspect]
     Indication: ACCIDENTAL EXPOSURE
     Dosage: ORAL
     Route: 048
  2. BENZATHINE PENICILLIN (BENZATHINE BENZYLPENICILLIN) [Suspect]
     Indication: ACCIDENTAL EXPOSURE
  3. CONTRACEPTIVE (ORAL CONTRACEPTIVE NOS) [Suspect]
     Indication: ACCIDENTAL EXPOSURE
  4. FLUOXETINE [Suspect]
     Indication: ACCIDENTAL EXPOSURE
  5. CLONAZEPAM [Suspect]
     Indication: ACCIDENTAL EXPOSURE

REACTIONS (2)
  - ACCIDENTAL EXPOSURE [None]
  - SOMNOLENCE [None]
